FAERS Safety Report 15095890 (Version 5)
Quarter: 2018Q4

REPORT INFORMATION
  Report Type: Spontaneous
  Country: DE (occurrence: DE)
  Receive Date: 20180702
  Receipt Date: 20181030
  Transmission Date: 20190204
  Serious: Yes (Death, Life-Threatening, Other)
  Sender: FDA-Public Use
  Company Number: PHHY2018DE031576

PATIENT
  Age: 63 Year
  Sex: Male

DRUGS (4)
  1. ETOPOSIDE. [Suspect]
     Active Substance: ETOPOSIDE
     Indication: RECTAL ADENOCARCINOMA
     Dosage: UNK, CYCLIC (3 CYCLICAL)
     Route: 065
  2. CARBOPLATIN. [Suspect]
     Active Substance: CARBOPLATIN
     Indication: MIXED ADENONEUROENDOCRINE CARCINOMA
  3. ETOPOSIDE. [Suspect]
     Active Substance: ETOPOSIDE
     Indication: MIXED ADENONEUROENDOCRINE CARCINOMA
  4. CARBOPLATIN. [Suspect]
     Active Substance: CARBOPLATIN
     Indication: RECTAL ADENOCARCINOMA
     Dosage: UNK, CYCLIC (3 CYCLICAL)
     Route: 065

REACTIONS (3)
  - Cerebral haemorrhage [Fatal]
  - Respiratory failure [Fatal]
  - Product use in unapproved indication [Unknown]
